FAERS Safety Report 21258192 (Version 1)
Quarter: 2022Q3

REPORT INFORMATION
  Report Type: Report from Study
  Country: CA (occurrence: CA)
  Receive Date: 20220826
  Receipt Date: 20220826
  Transmission Date: 20221026
  Serious: Yes (Hospitalization, Other)
  Sender: FDA-Public Use
  Company Number: CA-JNJFOC-20220845333

PATIENT
  Age: 35 Year
  Sex: Female
  Weight: 54 kg

DRUGS (1)
  1. REMICADE [Suspect]
     Active Substance: INFLIXIMAB
     Indication: Crohn^s disease
     Route: 041
     Dates: start: 20120905

REACTIONS (9)
  - COVID-19 [Recovering/Resolving]
  - Visual impairment [Recovering/Resolving]
  - Blood glucose increased [Recovering/Resolving]
  - Eyelid ptosis [Recovered/Resolved]
  - Computerised tomogram abnormal [Unknown]
  - Dehydration [Recovered/Resolved]
  - Palpitations [Unknown]
  - Dizziness [Not Recovered/Not Resolved]
  - Crohn^s disease [Unknown]

NARRATIVE: CASE EVENT DATE: 20220701
